FAERS Safety Report 8791014 (Version 1)
Quarter: 2012Q4

REPORT INFORMATION
  Report Type: Spontaneous
  Country: US (occurrence: None)
  Receive Date: 20120907
  Receipt Date: 20120907
  Transmission Date: 20130627
  Serious: Yes (Other)
  Sender: FDA-Public Use
  Company Number: 201208067

PATIENT
  Sex: Male

DRUGS (3)
  1. TESTIM [Suspect]
     Route: 062
  2. TESTIM [Suspect]
     Route: 062
  3. XYREM [Suspect]

REACTIONS (3)
  - Cardiac failure congestive [None]
  - Chronic obstructive pulmonary disease [None]
  - Condition aggravated [None]
